FAERS Safety Report 15357996 (Version 1)
Quarter: 2018Q3

REPORT INFORMATION
  Report Type: Report from Study
  Country: BR (occurrence: BR)
  Receive Date: 20180906
  Receipt Date: 20180906
  Transmission Date: 20181010
  Serious: Yes (Hospitalization, Other)
  Sender: FDA-Public Use
  Company Number: PHHY2018BR087648

PATIENT
  Age: 81 Year
  Sex: Female
  Weight: 50 kg

DRUGS (1)
  1. DIOVAN [Suspect]
     Active Substance: VALSARTAN
     Indication: HYPERTENSION
     Dosage: 3 DF, QD (EVERY 8 HOURS, THE MORNING, 12:00 AND AT NIGHT )
     Route: 048

REACTIONS (11)
  - Intestinal haemorrhage [Recovered/Resolved]
  - Haemorrhage [Unknown]
  - Dyspnoea [Unknown]
  - Diverticulitis [Unknown]
  - Intestinal haemorrhage [Unknown]
  - Vomiting [Unknown]
  - Weight decreased [Unknown]
  - Arrhythmia [Not Recovered/Not Resolved]
  - Mobility decreased [Unknown]
  - Speech disorder [Unknown]
  - Anxiety [Unknown]

NARRATIVE: CASE EVENT DATE: 20180216
